FAERS Safety Report 9187471 (Version 2)
Quarter: 2013Q2

REPORT INFORMATION
  Report Type: Spontaneous
  Country: US (occurrence: US)
  Receive Date: 20130325
  Receipt Date: 20130529
  Transmission Date: 20140414
  Serious: Yes (Other)
  Sender: FDA-Public Use
  Company Number: US-PFIZER INC-2013093177

PATIENT
  Age: 65 Year
  Sex: Female
  Weight: 214 kg

DRUGS (4)
  1. CHANTIX [Suspect]
     Indication: SMOKING CESSATION THERAPY
     Dosage: STARTER PACK FOR FOUR MONTHS
     Dates: start: 20071212
  2. CHANTIX [Suspect]
     Dosage: 1 MG, MAINTENANCE PACK
     Dates: start: 20080121
  3. CHANTIX [Suspect]
     Dosage: 1 MG, MAINTENANCE PACK
     Dates: start: 20080304
  4. CHANTIX [Suspect]
     Dosage: STARTER PACK
     Dates: start: 20080417, end: 20080515

REACTIONS (1)
  - Suicidal ideation [Unknown]
